FAERS Safety Report 20392581 (Version 2)
Quarter: 2022Q1

REPORT INFORMATION
  Report Type: Spontaneous
  Country: BR (occurrence: BR)
  Receive Date: 20220128
  Receipt Date: 20220210
  Transmission Date: 20220424
  Serious: Yes (Life-Threatening, Hospitalization, Disabling, Other)
  Sender: FDA-Public Use
  Company Number: BR-BIOMARINAP-BR-2022-141094

PATIENT
  Age: 6 Year
  Sex: Male
  Weight: 22 kg

DRUGS (2)
  1. VIMIZIM [Suspect]
     Active Substance: ELOSULFASE ALFA
     Indication: Mucopolysaccharidosis IV
     Dosage: 40 MILLIGRAM, QW
     Route: 042
     Dates: start: 20210605
  2. ACETAMINOPHEN [Concomitant]
     Active Substance: ACETAMINOPHEN
     Indication: Product used for unknown indication

REACTIONS (7)
  - Spinal cord compression [Recovering/Resolving]
  - Spinal cord haematoma [Recovering/Resolving]
  - Hypokinesia [Recovering/Resolving]
  - Gait inability [Recovering/Resolving]
  - Tremor [Recovering/Resolving]
  - Headache [Recovering/Resolving]
  - Back pain [Recovering/Resolving]

NARRATIVE: CASE EVENT DATE: 20211201
